FAERS Safety Report 9345910 (Version 2)
Quarter: 2013Q3

REPORT INFORMATION
  Report Type: Spontaneous
  Country: US (occurrence: US)
  Receive Date: 20130613
  Receipt Date: 20130911
  Transmission Date: 20140515
  Serious: Yes (Death)
  Sender: FDA-Public Use
  Company Number: US-PFIZER INC-2013174926

PATIENT
  Age: 51 Year
  Sex: Female

DRUGS (1)
  1. XALKORI [Suspect]
     Dosage: 250 MG, 2X/DAY (BID)
     Route: 048
     Dates: start: 20130124, end: 20130515

REACTIONS (1)
  - Death [Fatal]
